FAERS Safety Report 5700562-8 (Version None)
Quarter: 2008Q2

REPORT INFORMATION
  Report Type: 
  Country: None (occurrence: None)
  Receive Date: 20080409
  Receipt Date: 20080409
  Transmission Date: 20081010
  Serious: No
  Sender: FDA-Public Use
  Company Number: None

PATIENT
  Age: 57 Year
  Sex: Male
  Weight: 100 kg

DRUGS (1)
  1. VERSED [Suspect]
     Indication: SEDATION
     Dosage: 2 MG ONCE I.V.
     Route: 042
     Dates: start: 20080326

REACTIONS (3)
  - ERYTHEMA [None]
  - SNEEZING [None]
  - VEIN DISORDER [None]
